FAERS Safety Report 4981001-1 (Version None)
Quarter: 2006Q2

REPORT INFORMATION
  Report Type: 
  Country: None (occurrence: None)
  Receive Date: 20060418
  Receipt Date: 20060329
  Transmission Date: 20061013
  Serious: Yes (Death, Hospitalization)
  Sender: FDA-Public Use
  Company Number: US200603003129

PATIENT
  Age: 52 Year
  Sex: Female
  Weight: 88.4 kg

DRUGS (3)
  1. GEMCITABINE HYDROCHLORIDE (GEMCITABINE HYDROCHLORIDE) VIAL [Suspect]
     Indication: METASTATIC NEOPLASM
     Dosage: 1000 MG/M2, OTHER, INTRAVENOUS
     Route: 042
     Dates: start: 20050215
  2. *CPT-11 (*CPT-11) [Suspect]
     Indication: METASTATIC NEOPLASM
     Dosage: 100 MG/M2, OTHER, INTRAVENOUS
     Route: 042
     Dates: start: 20060215
  3. TIMENTIN [Concomitant]

REACTIONS (14)
  - ABDOMINAL SEPSIS [None]
  - ATELECTASIS [None]
  - AZOTAEMIA [None]
  - CARDIO-RESPIRATORY ARREST [None]
  - CONSTIPATION [None]
  - DEHYDRATION [None]
  - DYSPNOEA [None]
  - GENERAL PHYSICAL HEALTH DETERIORATION [None]
  - MALIGNANT NEOPLASM PROGRESSION [None]
  - PNEUMOPERITONEUM [None]
  - RENAL FAILURE ACUTE [None]
  - TUMOUR NECROSIS [None]
  - UROSEPSIS [None]
  - VOMITING [None]
